FAERS Safety Report 16498346 (Version 1)
Quarter: 2019Q2

REPORT INFORMATION
  Report Type: Spontaneous
  Country: US (occurrence: US)
  Receive Date: 20190629
  Receipt Date: 20190629
  Transmission Date: 20190711
  Serious: No
  Sender: FDA-Public Use
  Company Number: US-JNJFOC-20190635990

PATIENT
  Age: 66 Year
  Sex: Female

DRUGS (1)
  1. MENS ROGAINE EXTRA STRENGTH [Suspect]
     Active Substance: MINOXIDIL
     Indication: PRODUCT USED FOR UNKNOWN INDICATION
     Route: 061

REACTIONS (4)
  - Seborrhoea [Recovered/Resolved]
  - Product use issue [Recovered/Resolved]
  - Hair texture abnormal [Recovered/Resolved]
  - Intentional product misuse [Recovered/Resolved]
